APPROVED DRUG PRODUCT: GUAIFENESIN
Active Ingredient: GUAIFENESIN
Strength: 600MG
Dosage Form/Route: TABLET, EXTENDED RELEASE;ORAL
Application: A209215 | Product #001
Applicant: GUARDIAN DRUG CO
Approved: Sep 6, 2017 | RLD: No | RS: No | Type: OTC